FAERS Safety Report 9938142 (Version 3)
Quarter: 2014Q1

REPORT INFORMATION
  Report Type: Spontaneous
  Country: FR (occurrence: FR)
  Receive Date: 20140303
  Receipt Date: 20140318
  Transmission Date: 20141002
  Serious: Yes (Hospitalization, Other)
  Sender: FDA-Public Use
  Company Number: FR-JNJFOC-20140213382

PATIENT
  Age: 79 Year
  Sex: Male

DRUGS (1)
  1. HALDOL [Suspect]
     Indication: AGITATION
     Route: 048
     Dates: start: 20131203, end: 20131218

REACTIONS (6)
  - Pneumonia aspiration [Unknown]
  - Confusional state [Recovered/Resolved]
  - Overdose [Unknown]
  - Enterococcal bacteraemia [Recovering/Resolving]
  - Hyperthermia [Recovering/Resolving]
  - General physical health deterioration [Recovering/Resolving]
